FAERS Safety Report 8838340 (Version 2)
Quarter: 2012Q4

REPORT INFORMATION
  Report Type: 
  Country: FR (occurrence: FR)
  Receive Date: 20121012
  Receipt Date: 20121025
  Transmission Date: 20130627
  Serious: Yes (Other)
  Sender: FDA-Public Use
  Company Number: FR-GLAXOSMITHKLINE-B0834682A

PATIENT
  Age: 80 Year
  Sex: Male

DRUGS (5)
  1. AVODART [Suspect]
     Indication: PRODUCT USED FOR UNKNOWN INDICATION
     Dosage: .5MG Per day
     Route: 048
     Dates: start: 20120719, end: 20120907
  2. PREVISCAN [Suspect]
     Indication: PRODUCT USED FOR UNKNOWN INDICATION
     Dosage: 10MG Per day
     Route: 048
     Dates: start: 2009
  3. MODOPAR [Concomitant]
     Dosage: 937.5MG per day
     Route: 048
  4. FUROSEMIDE [Concomitant]
     Dosage: 20MG Per day
     Route: 048
     Dates: start: 20120719
  5. TICARPEN [Concomitant]
     Dates: start: 20120719, end: 201208

REACTIONS (3)
  - International normalised ratio increased [Recovered/Resolved]
  - Drug interaction [Recovered/Resolved]
  - Respiratory disorder [None]
